FAERS Safety Report 5337124-0 (Version None)
Quarter: 2007Q2

REPORT INFORMATION
  Report Type: 
  Country: None (occurrence: None)
  Receive Date: 20070529
  Receipt Date: 20070522
  Transmission Date: 20071010
  Serious: Yes (Other)
  Sender: FDA-Public Use
  Company Number: US-ASTRAZENECA-2007UW12700

PATIENT
  Age: 84 Year
  Sex: Male

DRUGS (1)
  1. CASODEX [Suspect]
     Indication: PROSTATE CANCER
     Route: 048
     Dates: start: 20070201, end: 20070501

REACTIONS (6)
  - ANOREXIA [None]
  - AORTIC VALVE STENOSIS [None]
  - GASTRIC DISORDER [None]
  - GENERAL PHYSICAL HEALTH DETERIORATION [None]
  - RENAL DISORDER [None]
  - WEIGHT DECREASED [None]
